FAERS Safety Report 9626262 (Version 2)
Quarter: 2013Q4

REPORT INFORMATION
  Report Type: Spontaneous
  Country: US (occurrence: None)
  Receive Date: 20131003
  Receipt Date: 20131104
  Transmission Date: 20140711
  Serious: Yes (Other)
  Sender: FDA-Public Use
  Company Number: 2013038238

PATIENT
  Age: 10 Year
  Sex: Female

DRUGS (1)
  1. PRIVIGEN [Suspect]
     Indication: IMMUNODEFICIENCY COMMON VARIABLE
     Dosage: 15 G 1X/MONTH INTRAVENOUS
     Route: 042
     Dates: start: 201304

REACTIONS (2)
  - Nephrolithiasis [None]
  - Meningitis aseptic [None]
